FAERS Safety Report 8816944 (Version 1)
Quarter: 2012Q4

REPORT INFORMATION
  Report Type: Spontaneous
  Country: US (occurrence: None)
  Receive Date: 20121003
  Receipt Date: 20121003
  Transmission Date: 20130627
  Serious: No
  Sender: FDA-Public Use
  Company Number: None

PATIENT

DRUGS (2)
  1. GAMMAKED [Suspect]
     Dosage: 60 grams one time IV Drip
     Dates: start: 20120830, end: 20120830
  2. GAMMAKED [Suspect]

REACTIONS (2)
  - Product deposit [None]
  - No adverse event [None]
